FAERS Safety Report 9655634 (Version 2)
Quarter: 2013Q4

REPORT INFORMATION
  Report Type: Report from Study
  Country: US (occurrence: US)
  Receive Date: 20131030
  Receipt Date: 20131120
  Transmission Date: 20140711
  Serious: Yes (Hospitalization, Other)
  Sender: FDA-Public Use
  Company Number: US-ROCHE-1295042

PATIENT
  Age: 63 Year
  Sex: Male

DRUGS (6)
  1. ZELBORAF [Suspect]
     Indication: NECK MASS
     Dosage: DOSE AND FREQUENCY: 4 PILLS IN THE MORNING AND 4 PILLS AT NIGHT
     Route: 065
  2. LISINOPRIL [Concomitant]
  3. HYDROCODONE/ACETAMINOPHEN [Concomitant]
  4. FAMOTIDINE [Concomitant]
  5. METFORMIN [Concomitant]
     Indication: DIABETES MELLITUS
  6. PRAVASTATIN [Concomitant]

REACTIONS (5)
  - Abdominal pain upper [Recovered/Resolved]
  - Ill-defined disorder [Recovered/Resolved]
  - Gastric perforation [Unknown]
  - Blister [Recovering/Resolving]
  - Local swelling [Recovering/Resolving]
